FAERS Safety Report 11026308 (Version 1)
Quarter: 2015Q2

REPORT INFORMATION
  Report Type: Spontaneous
  Country: US (occurrence: None)
  Receive Date: 20150413
  Receipt Date: 20150413
  Transmission Date: 20150821
  Serious: No
  Sender: FDA-Public Use
  Company Number: None

PATIENT
  Age: 60 Year
  Sex: Female
  Weight: 102.06 kg

DRUGS (3)
  1. VALSARTAN HCT [Suspect]
     Active Substance: HYDROCHLOROTHIAZIDE\VALSARTAN
     Indication: BLOOD PRESSURE
     Dosage: 1 PILL
     Route: 048
     Dates: start: 20150323, end: 20150410
  2. NEXIUM [Concomitant]
     Active Substance: ESOMEPRAZOLE MAGNESIUM
  3. SYNTHROID [Concomitant]
     Active Substance: LEVOTHYROXINE SODIUM

REACTIONS (7)
  - Product quality issue [None]
  - Headache [None]
  - Head discomfort [None]
  - Peripheral swelling [None]
  - Dry mouth [None]
  - Product substitution issue [None]
  - Thirst [None]
